FAERS Safety Report 13171867 (Version 2)
Quarter: 2017Q1

REPORT INFORMATION
  Report Type: Spontaneous
  Country: US (occurrence: US)
  Receive Date: 20170201
  Receipt Date: 20170313
  Transmission Date: 20170428
  Serious: Yes (Other)
  Sender: FDA-Public Use
  Company Number: US-PFIZER INC-2017041572

PATIENT
  Age: 56 Year
  Sex: Female

DRUGS (28)
  1. CYCLOPHOSPHAMIDE. [Suspect]
     Active Substance: CYCLOPHOSPHAMIDE
     Dosage: DAILY, 6 CYCLES (1 IN - 2) 6 CYCLES (1 IN 1 CYCLICAL)
     Dates: start: 2004
  2. CYTOXAN [Suspect]
     Active Substance: CYCLOPHOSPHAMIDE
     Indication: BREAST CANCER
     Dosage: UNK, CYCLIC [ FOR 6 CYCLES]
  3. TAXOL [Suspect]
     Active Substance: PACLITAXEL
     Indication: BREAST CANCER
     Dosage: UNK UNK, CYCLIC [ADMINISTERED FOR 6 WEEKS (3 WEEKS ON AND 1 WEEK OFF)] (1 IN 1 CYCLICAL)
     Dates: start: 20040819
  4. TAMOXIFEN [Suspect]
     Active Substance: TAMOXIFEN
     Indication: INFLAMMATORY CARCINOMA OF THE BREAST
     Dosage: UNK
     Dates: start: 20050101, end: 20070727
  5. XGEVA [Suspect]
     Active Substance: DENOSUMAB
     Indication: BREAST CANCER
     Dosage: 1 IN 1 M
     Dates: start: 20130701, end: 20140305
  6. SYMBICORT [Concomitant]
     Active Substance: BUDESONIDE\FORMOTEROL FUMARATE DIHYDRATE
     Route: 055
  7. PROBIOTICS [Concomitant]
     Active Substance: PROBIOTICS NOS
     Route: 048
  8. TAMOXIFEN [Suspect]
     Active Substance: TAMOXIFEN
     Indication: BREAST CANCER METASTATIC
     Dosage: UNK
     Dates: start: 20130304, end: 20130412
  9. ACETAMINOPHEN. [Concomitant]
     Active Substance: ACETAMINOPHEN
  10. VENTOLIN HFA [Concomitant]
     Active Substance: ALBUTEROL SULFATE
  11. ZYRTEC [Concomitant]
     Active Substance: CETIRIZINE HYDROCHLORIDE
     Dosage: 10 MG, UNK
  12. ROBITUSSIN (GUAIFENESIN) [Concomitant]
     Active Substance: GUAIFENESIN
     Dosage: 100MG/5ML
  13. ADRIAMYCIN [Suspect]
     Active Substance: DOXORUBICIN HYDROCHLORIDE
     Indication: BREAST CANCER
     Dosage: UNK CYCLIC [ FOR 6 CYCLES] (1 IN - 1 CYCLICAL)
     Dates: start: 2004
  14. NORVASC [Concomitant]
     Active Substance: AMLODIPINE BESYLATE
     Dosage: 5 MG, UNK
  15. FISH OIL [Concomitant]
     Active Substance: FISH OIL
     Dosage: 300 - 1000MG
  16. TAXOTERE [Suspect]
     Active Substance: DOCETAXEL
     Indication: BREAST CANCER
     Dosage: UNK CYCLIC [ FOR 6 CYCLES] ((1 IN - 1 CYCLICAL))
     Dates: start: 2004
  17. TAXOL [Suspect]
     Active Substance: PACLITAXEL
     Dosage: UNK, WEEKLY [X6 WEEKS]
     Dates: end: 20040819
  18. FEMARA [Suspect]
     Active Substance: LETROZOLE
     Indication: BREAST CANCER
     Dosage: UNK [X 5 YEARS]
     Dates: start: 20070727, end: 201207
  19. CHOLECALCIFEROL [Concomitant]
     Active Substance: CHOLECALCIFEROL
  20. IBRANCE [Suspect]
     Active Substance: PALBOCICLIB
     Indication: BREAST CANCER
     Dosage: UNK
     Dates: start: 20140305
  21. CALCIUM WITH VITAMIN D /00944201/ [Concomitant]
     Active Substance: CALCIUM CARBONATE\CHOLECALCIFEROL
     Dosage: 600 MG (1500 MG) 400 UNIT PER TABLET
  22. AROMASIN [Concomitant]
     Active Substance: EXEMESTANE
     Dosage: 25 MG, UNK
  23. TAMOXIFEN [Suspect]
     Active Substance: TAMOXIFEN
     Dosage: UNK [X2 YEARS] FOLLOWED BY FEMARA X 5 YEARS
     Dates: start: 20050101, end: 20120731
  24. FASLODEX [Suspect]
     Active Substance: FULVESTRANT
     Indication: BREAST CANCER
     Dosage: UNK
     Dates: start: 20130426
  25. IBRANCE [Suspect]
     Active Substance: PALBOCICLIB
     Dosage: UNK
     Dates: start: 20161023, end: 20170121
  26. FEMARA [Suspect]
     Active Substance: LETROZOLE
     Indication: INFLAMMATORY CARCINOMA OF THE BREAST
  27. THERAGRAN /01824401/ [Concomitant]
     Dosage: PER TABLET
  28. DELTASONE /00016001/ [Concomitant]
     Dosage: 20 MG, UNK

REACTIONS (10)
  - Bronchiectasis [Unknown]
  - Blood pressure increased [Unknown]
  - Neoplasm progression [Unknown]
  - Arthralgia [Unknown]
  - Rib fracture [Unknown]
  - Lymphoedema [Unknown]
  - Pulmonary embolism [Unknown]
  - Condition aggravated [Unknown]
  - Cough [Unknown]
  - Renal cell carcinoma [Unknown]

NARRATIVE: CASE EVENT DATE: 201210
